FAERS Safety Report 7987574-9 (Version None)
Quarter: 2011Q4

REPORT INFORMATION
  Report Type: 
  Country: None (occurrence: None)
  Receive Date: 20111216
  Receipt Date: 20110415
  Transmission Date: 20120403
  Serious: Yes (Other)
  Sender: FDA-Public Use
  Company Number: US-BRISTOL-MYERS SQUIBB COMPANY-15678121

PATIENT
  Sex: Female

DRUGS (3)
  1. CYMBALTA [Suspect]
  2. ABILIFY [Suspect]
  3. LAMICTAL [Suspect]

REACTIONS (1)
  - NEUROLEPTIC MALIGNANT SYNDROME [None]
